FAERS Safety Report 4432947-4 (Version None)
Quarter: 2004Q3

REPORT INFORMATION
  Report Type: 
  Country: None (occurrence: None)
  Receive Date: 20040726
  Receipt Date: 20040413
  Transmission Date: 20050211
  Serious: No
  Sender: FDA-Public Use
  Company Number: USA040463968

PATIENT
  Age: 64 Year
  Sex: Female
  Weight: 47 kg

DRUGS (8)
  1. FORTEO [Suspect]
     Indication: OSTEOPOROSIS
     Dosage: 20 UG/ 1 DAY
     Dates: start: 20040302
  2. SYNTHROID [Concomitant]
  3. HYDROCHLOROTHIAZIDE [Concomitant]
  4. ATACAND [Concomitant]
  5. REGLAN [Concomitant]
  6. ACETAMINOPHEN AND HYDROCODONE BITARTRATE [Concomitant]
  7. ACETAMINOPHEN [Concomitant]
  8. NEXIUM [Concomitant]

REACTIONS (2)
  - DIARRHOEA [None]
  - POLLAKIURIA [None]
